FAERS Safety Report 13846294 (Version 1)
Quarter: 2017Q3

REPORT INFORMATION
  Report Type: Spontaneous
  Country: US (occurrence: US)
  Receive Date: 20170808
  Receipt Date: 20170808
  Transmission Date: 20171127
  Serious: No
  Sender: FDA-Public Use
  Company Number: US-ROCHE-594360

PATIENT
  Age: 81 Year
  Sex: Female

DRUGS (18)
  1. MULTIVITAMIN [Concomitant]
     Active Substance: VITAMINS
     Dosage: DRUG NAME: MULTIVITAMIN
     Route: 065
  2. PRIMROSE [Concomitant]
     Dosage: PRIMROSE OIL
     Route: 065
  3. BONIVA [Suspect]
     Active Substance: IBANDRONATE SODIUM
     Indication: ARTHROPATHY
     Route: 065
  4. GENERIC COMPONENT(S) NOT KNOWN [Concomitant]
     Active Substance: UNSPECIFIED INGREDIENT
     Dosage: DRUG NAME: HERBS
     Route: 065
  5. CELEBREX [Concomitant]
     Active Substance: CELECOXIB
     Route: 065
  6. SINGULAIR [Concomitant]
     Active Substance: MONTELUKAST SODIUM
     Route: 065
  7. GLUCOSAMINE [Concomitant]
     Active Substance: GLUCOSAMINE
     Dosage: DRUG NAME: GLUCOSAME
     Route: 065
  8. GENERIC COMPONENT(S) NOT KNOWN [Concomitant]
     Active Substance: UNSPECIFIED INGREDIENT
     Dosage: DRUG NAME: ALPHA
     Route: 065
  9. GENERIC COMPONENT(S) NOT KNOWN [Concomitant]
     Active Substance: UNSPECIFIED INGREDIENT
     Dosage: MANY OILS
     Route: 065
  10. VITAMINS NOS [Concomitant]
     Active Substance: VITAMINS
     Dosage: DRUG NAME: VITAMINS FOR EYES
     Route: 065
  11. COLLAGEN [Concomitant]
     Active Substance: COLLAGEN
     Route: 065
  12. VITAMIN C [Concomitant]
     Active Substance: ASCORBIC ACID
     Route: 065
  13. VITAMIN B COMPLEX [Concomitant]
     Active Substance: CYANOCOBALAMIN\DEXPANTHENOL\NIACINAMIDE\PYRIDOXINE HYDROCHLORIDE\RIBOFLAVIN 5^-PHOSPHATE SODIUM\THIAMINE HYDROCHLORIDE\VITAMIN B COMPLEX
     Route: 065
  14. OMEGA 3-6-9 [Concomitant]
     Active Substance: FISH OIL
     Dosage: OMEGA 3, 6 AND 9
     Route: 065
  15. CALCIUM [Concomitant]
     Active Substance: CALCIUM
     Route: 065
  16. GARLIC. [Concomitant]
     Active Substance: GARLIC
     Route: 065
  17. GENERIC COMPONENT(S) NOT KNOWN [Concomitant]
     Active Substance: UNSPECIFIED INGREDIENT
     Dosage: DRUG NAME: WINE COMPLEX
     Route: 065
  18. GENERIC COMPONENT(S) NOT KNOWN [Concomitant]
     Active Substance: UNSPECIFIED INGREDIENT
     Dosage: DRUG NAME: VEGETABLE COMPLEX
     Route: 065

REACTIONS (5)
  - Drug ineffective [Unknown]
  - Depression [Unknown]
  - Psychiatric symptom [Unknown]
  - Fatigue [Unknown]
  - Malaise [Not Recovered/Not Resolved]
